FAERS Safety Report 8403524-5 (Version None)
Quarter: 2012Q2

REPORT INFORMATION
  Report Type: 
  Country: None (occurrence: None)
  Receive Date: 20120601
  Receipt Date: 20120524
  Transmission Date: 20120825
  Serious: Yes (Disabling, Other)
  Sender: FDA-Public Use
  Company Number: DE-ABBOTT-12P-062-0939053-00

PATIENT
  Age: 47 Year
  Sex: Female
  Weight: 58 kg

DRUGS (2)
  1. HUMIRA [Suspect]
     Indication: CROHN'S DISEASE
     Route: 058
     Dates: start: 20090415, end: 20120301
  2. METROCIPRO [Concomitant]
     Indication: PRODUCT USED FOR UNKNOWN INDICATION
     Dosage: 400/500
     Dates: start: 20111221, end: 20111231

REACTIONS (4)
  - MESENTERIC LYMPHADENOPATHY [None]
  - ADENOCARCINOMA [None]
  - ANAL FISTULA [None]
  - ANAL STENOSIS [None]
